FAERS Safety Report 24006476 (Version 1)
Quarter: 2024Q2

REPORT INFORMATION
  Report Type: Spontaneous
  Country: US (occurrence: None)
  Receive Date: 20240624
  Receipt Date: 20240624
  Transmission Date: 20240715
  Serious: Yes (Hospitalization)
  Sender: FDA-Public Use
  Company Number: None

PATIENT
  Sex: Male

DRUGS (4)
  1. MYCOPHENOLATE MOFETIL [Suspect]
     Active Substance: MYCOPHENOLATE MOFETIL
     Indication: Renal transplant
     Dates: start: 20191009
  2. IT ACROLI MUS [Concomitant]
  3. ITACROLIMUS CAP 0.5MG [Concomitant]
  4. IT ACROLI MUS A [Concomitant]

REACTIONS (2)
  - Skin neoplasm excision [None]
  - Therapy interrupted [None]
